FAERS Safety Report 10562698 (Version 1)
Quarter: 2014Q4

REPORT INFORMATION
  Report Type: Spontaneous
  Country: US (occurrence: None)
  Receive Date: 20141103
  Receipt Date: 20141103
  Transmission Date: 20150529
  Serious: Yes (Disabling)
  Sender: FDA-Public Use
  Company Number: None

PATIENT
  Age: 51 Year
  Sex: Female
  Weight: 70.76 kg

DRUGS (1)
  1. MIRENA [Suspect]
     Active Substance: LEVONORGESTREL

REACTIONS (12)
  - Panic attack [None]
  - Feeling abnormal [None]
  - Nervousness [None]
  - Sleep disorder [None]
  - Palpitations [None]
  - Arthralgia [None]
  - Tinnitus [None]
  - Malaise [None]
  - Abnormal dreams [None]
  - Dizziness [None]
  - Paraesthesia [None]
  - Hypertension [None]

NARRATIVE: CASE EVENT DATE: 20140521
